FAERS Safety Report 7939015-5 (Version None)
Quarter: 2011Q4

REPORT INFORMATION
  Report Type: 
  Country: None (occurrence: None)
  Receive Date: 20111124
  Receipt Date: 20111121
  Transmission Date: 20120403
  Serious: Yes (Hospitalization, Congenital Anomaly, Other)
  Sender: FDA-Public Use
  Company Number: US-PFIZER INC-2008051539

PATIENT
  Sex: Female

DRUGS (1)
  1. ZOLOFT [Suspect]
     Dosage: UNK
     Route: 064

REACTIONS (13)
  - PULMONARY OEDEMA [None]
  - ATRIOVENTRICULAR BLOCK FIRST DEGREE [None]
  - FALLOT'S TETRALOGY [None]
  - CONGENITAL CORONARY ARTERY MALFORMATION [None]
  - CARDIOMEGALY [None]
  - FOETAL EXPOSURE DURING PREGNANCY [None]
  - ELECTROCARDIOGRAM QT PROLONGED [None]
  - DILATATION VENTRICULAR [None]
  - TRICUSPID VALVE INCOMPETENCE [None]
  - RIGHT ATRIAL DILATATION [None]
  - PULMONARY HYPERTENSION [None]
  - PNEUMOTHORAX [None]
  - AORTIC VALVE INCOMPETENCE [None]
